FAERS Safety Report 8366337-9 (Version None)
Quarter: 2012Q2

REPORT INFORMATION
  Report Type: 
  Country: None (occurrence: None)
  Receive Date: 20120517
  Receipt Date: 20120514
  Transmission Date: 20120825
  Serious: No
  Sender: FDA-Public Use
  Company Number: US-PFIZER INC-2012117203

PATIENT
  Sex: Female

DRUGS (5)
  1. METOPROLOL [Concomitant]
     Dosage: UNK
  2. INLYTA [Suspect]
     Indication: RENAL CANCER
     Dosage: 5 MG, 2X/DAY
     Route: 048
  3. HYDROCHLOROTHIAZIDE [Concomitant]
     Dosage: UNK
  4. LORTAB [Concomitant]
     Dosage: UNK
  5. OXYCODONE [Concomitant]
     Dosage: UNK

REACTIONS (1)
  - PHOTOPHOBIA [None]
